FAERS Safety Report 23033014 (Version 10)
Quarter: 2024Q1

REPORT INFORMATION
  Report Type: Spontaneous
  Country: US (occurrence: US)
  Receive Date: 20231005
  Receipt Date: 20240220
  Transmission Date: 20240409
  Serious: No
  Sender: FDA-Public Use
  Company Number: US-PFIZER INC-202300281678

PATIENT
  Age: 13 Year
  Sex: Male

DRUGS (1)
  1. GENOTROPIN [Suspect]
     Active Substance: SOMATROPIN
     Dosage: UNK

REACTIONS (6)
  - Poor quality device used [Unknown]
  - Device information output issue [Unknown]
  - Device mechanical issue [Unknown]
  - Device malfunction [Unknown]
  - Device leakage [Unknown]
  - Product administered at inappropriate site [Unknown]

NARRATIVE: CASE EVENT DATE: 20230101
